FAERS Safety Report 12697575 (Version 2)
Quarter: 2016Q3

REPORT INFORMATION
  Report Type: Spontaneous
  Country: NO (occurrence: NO)
  Receive Date: 20160830
  Receipt Date: 20160907
  Transmission Date: 20161109
  Serious: Yes (Hospitalization, Other)
  Sender: FDA-Public Use
  Company Number: PHHY2016NO054104

PATIENT
  Age: 68 Year
  Sex: Male

DRUGS (12)
  1. AERIUS [Concomitant]
     Active Substance: DESLORATADINE
     Indication: ASTHMA
     Route: 065
  2. BETNOVAT [Concomitant]
     Active Substance: BETAMETHASONE
     Indication: ASTHMA
     Dosage: DAILY WHEN NEEDED, STARTED THREE YEARS AGO
     Route: 065
  3. BETNOVAT [Concomitant]
     Active Substance: BETAMETHASONE
     Indication: HYPERSENSITIVITY
  4. DERMOVAT [Concomitant]
     Active Substance: CLOBETASOL
     Indication: HYPERSENSITIVITY
  5. SANDIMMUN NEORAL [Suspect]
     Active Substance: CYCLOSPORINE
     Indication: DERMATITIS ATOPIC
     Dosage: 600 MG, UNK
     Route: 065
  6. AERIUS [Concomitant]
     Active Substance: DESLORATADINE
     Indication: DERMATITIS ATOPIC
  7. AERIUS [Concomitant]
     Active Substance: DESLORATADINE
     Indication: HYPERSENSITIVITY
  8. DERMOVAT [Concomitant]
     Active Substance: CLOBETASOL
     Indication: ASTHMA
     Dosage: DAILY WHEN NEEDED, STARTED THREE YEARS AGO
     Route: 065
  9. DERMOVAT [Concomitant]
     Active Substance: CLOBETASOL
     Indication: DERMATITIS ATOPIC
  10. SANDIMMUN NEORAL [Suspect]
     Active Substance: CYCLOSPORINE
     Dosage: 200 MG, UNK
     Route: 065
     Dates: start: 2015
  11. BETNOVAT [Concomitant]
     Active Substance: BETAMETHASONE
     Indication: DERMATITIS ATOPIC
  12. SANDIMMUN NEORAL [Suspect]
     Active Substance: CYCLOSPORINE
     Dosage: 700 TO 800 MG
     Route: 065
     Dates: start: 2013, end: 2014

REACTIONS (8)
  - Balance disorder [Unknown]
  - Alopecia [Unknown]
  - Lip neoplasm malignant stage unspecified [Recovered/Resolved with Sequelae]
  - Wound [Unknown]
  - Herpes ophthalmic [Unknown]
  - Staphylococcus test positive [Unknown]
  - Metastasis [Unknown]
  - Fall [Unknown]

NARRATIVE: CASE EVENT DATE: 201501
